FAERS Safety Report 25074900 (Version 1)
Quarter: 2025Q1

REPORT INFORMATION
  Report Type: Spontaneous
  Country: CA (occurrence: CA)
  Receive Date: 20250313
  Receipt Date: 20250313
  Transmission Date: 20250408
  Serious: Yes (Hospitalization)
  Sender: RECKITT BENCKISER
  Company Number: CA-INDIVIOR US-INDV-159620-2025

PATIENT

DRUGS (3)
  1. SUBLOCADE [Suspect]
     Active Substance: BUPRENORPHINE
     Indication: Product used for unknown indication
     Dosage: UNK, QMO
     Route: 065
  2. SUBLOCADE [Suspect]
     Active Substance: BUPRENORPHINE
  3. FRAGMIN [Concomitant]
     Active Substance: DALTEPARIN SODIUM
     Indication: Product used for unknown indication
     Route: 058

REACTIONS (1)
  - Hospitalisation [Not Recovered/Not Resolved]
